FAERS Safety Report 7685610-0 (Version None)
Quarter: 2011Q3

REPORT INFORMATION
  Report Type: 
  Country: None (occurrence: None)
  Receive Date: 20110815
  Receipt Date: 20110815
  Transmission Date: 20111222
  Serious: Yes (Hospitalization, Other)
  Sender: FDA-Public Use
  Company Number: None

PATIENT
  Sex: Female
  Weight: 98.8842 kg

DRUGS (1)
  1. SAPHRIS [Suspect]
     Indication: DEPRESSION
     Dosage: 5MG TWICE DAILY JULY 13 OR 14TH

REACTIONS (2)
  - CONDITION AGGRAVATED [None]
  - ANXIETY [None]
